FAERS Safety Report 8399899-6 (Version None)
Quarter: 2012Q2

REPORT INFORMATION
  Report Type: 
  Country: None (occurrence: None)
  Receive Date: 20120531
  Receipt Date: 20120521
  Transmission Date: 20120825
  Serious: Yes (Hospitalization)
  Sender: FDA-Public Use
  Company Number: DE-ELI_LILLY_AND_COMPANY-DE201205006917

PATIENT
  Sex: Female

DRUGS (5)
  1. AGGRENOX [Concomitant]
     Dosage: UNK
     Dates: start: 20110101
  2. FORTEO [Suspect]
     Indication: OSTEOPOROSIS
     Dosage: UNK, QD
     Route: 058
     Dates: start: 20110209
  3. VITAMIN D [Concomitant]
  4. CALCIUM [Concomitant]
  5. ANTIHYPERTENSIVES [Concomitant]

REACTIONS (4)
  - GAIT DISTURBANCE [None]
  - DYSPNOEA [None]
  - IRON DEFICIENCY [None]
  - BLOOD PRESSURE DECREASED [None]
